FAERS Safety Report 15898465 (Version 2)
Quarter: 2019Q2

REPORT INFORMATION
  Report Type: Spontaneous
  Country: ES (occurrence: ES)
  Receive Date: 20190201
  Receipt Date: 20190625
  Transmission Date: 20190711
  Serious: Yes (Death, Hospitalization)
  Sender: FDA-Public Use
  Company Number: ES-ACCORD-104537

PATIENT
  Age: 41 Year
  Sex: Female
  Weight: 57 kg

DRUGS (5)
  1. CARBOPLATIN. [Suspect]
     Active Substance: CARBOPLATIN
     Indication: BREAST CANCER
     Dosage: 590 MG,  LAST ADMINISTRATION: 23-FEB-2018
     Route: 042
     Dates: start: 20180223
  2. DEXAMETHASONE. [Concomitant]
     Active Substance: DEXAMETHASONE
     Dosage: LAST ADMINISTRATION: 23-FEB-2018,12 MG DAILY
     Dates: start: 20180323
  3. TRASTUZUMAB. [Interacting]
     Active Substance: TRASTUZUMAB
     Indication: BREAST CANCER
     Dosage: 455MG-LOADING DOSE,LAST ADMINISTRATION:23-FEB-2018
     Route: 042
     Dates: start: 20180223
  4. FORTECORTIN [Concomitant]
     Active Substance: DEXAMETHASONE
     Dosage: 1 CP DAY, 8 MG/DAY FROM 22-FEB-2018 TO 25-FEB-2018
     Route: 048
     Dates: start: 20180224, end: 20180227
  5. DOCETAXEL. [Interacting]
     Active Substance: DOCETAXEL
     Indication: BREAST CANCER
     Dosage: 125 MG, LAST ADMINISTRATION: 23-FEB-2018
     Route: 042
     Dates: start: 20180223

REACTIONS (5)
  - Drug interaction [Unknown]
  - Off label use [Unknown]
  - Colitis [Fatal]
  - Agranulocytosis [Fatal]
  - Large intestine perforation [Fatal]

NARRATIVE: CASE EVENT DATE: 20180302
